FAERS Safety Report 5242237-8 (Version None)
Quarter: 2007Q1

REPORT INFORMATION
  Report Type: 
  Country: None (occurrence: None)
  Receive Date: 20070215
  Receipt Date: 20070215
  Transmission Date: 20070707
  Serious: Yes (Hospitalization, Disabling)
  Sender: FDA-Public Use
  Company Number: None

PATIENT
  Age: 56 Year
  Sex: Male

DRUGS (12)
  1. DAPSONE [Suspect]
     Indication: HIV INFECTION
     Dates: start: 20060912, end: 20061012
  2. DAPSONE [Suspect]
     Indication: PNEUMOCYSTIS JIROVECI PNEUMONIA
     Dates: start: 20060912, end: 20061012
  3. DAPSONE [Suspect]
     Indication: PROPHYLAXIS
     Dates: start: 20060912, end: 20061012
  4. ALBUTEROL 90/IPRATROP 18MCG [Concomitant]
  5. CITALOPRAM HYDROBROMIDE [Concomitant]
  6. DIGOXIN [Concomitant]
  7. EFAVIRENZ [Concomitant]
  8. EMULSION [Concomitant]
  9. ENALAPRIL MALEATE [Concomitant]
  10. LAMIVUDINE 150MG/ZIDOVUDINE 300MG [Concomitant]
  11. METOPROLOL SUCCINATE [Concomitant]
  12. OMEPRAZOLE [Concomitant]

REACTIONS (3)
  - ANAEMIA [None]
  - DERMATITIS EXFOLIATIVE [None]
  - PRURITUS [None]
